FAERS Safety Report 8264305-9 (Version None)
Quarter: 2012Q2

REPORT INFORMATION
  Report Type: 
  Country: None (occurrence: None)
  Receive Date: 20120403
  Receipt Date: 20120322
  Transmission Date: 20120825
  Serious: Yes (Other)
  Sender: FDA-Public Use
  Company Number: IMP_05809_2012

PATIENT
  Age: 51 Year
  Sex: Female

DRUGS (5)
  1. LAMICTAL [Concomitant]
  2. KLONOPIN [Concomitant]
  3. LEVOTHYROXINE SODIUM [Concomitant]
  4. RISPERDAL [Concomitant]
  5. BUPROPION HCL [Suspect]
     Indication: DEPRESSION
     Dosage: (150 MG QD)

REACTIONS (6)
  - JOINT SWELLING [None]
  - JOINT EFFUSION [None]
  - ELEVATED MOOD [None]
  - AFFECT LABILITY [None]
  - GAIT DISTURBANCE [None]
  - JOINT WARMTH [None]
